FAERS Safety Report 13553551 (Version 2)
Quarter: 2017Q2

REPORT INFORMATION
  Report Type: Spontaneous
  Country: IR (occurrence: IR)
  Receive Date: 20170517
  Receipt Date: 20170614
  Transmission Date: 20170830
  Serious: Yes (Hospitalization, Other)
  Sender: FDA-Public Use
  Company Number: PHHY2017IR071291

PATIENT
  Age: 72 Year
  Sex: Male

DRUGS (2)
  1. SANDOSTATIN LAR DEPOT [Suspect]
     Active Substance: OCTREOTIDE ACETATE
     Dosage: 30 MG, QMO (EVERY 28 DAYS)
     Route: 065
  2. SANDOSTATIN LAR DEPOT [Suspect]
     Active Substance: OCTREOTIDE ACETATE
     Indication: NEUROENDOCRINE TUMOUR
     Dosage: 20 MG, (3 DOSE OF DRUG IN 3 MONTHS)
     Route: 065

REACTIONS (19)
  - Pulmonary embolism [Unknown]
  - Cyanosis [Unknown]
  - Conjunctivitis [Unknown]
  - Oxygen saturation decreased [Unknown]
  - Wheezing [Unknown]
  - Muscle spasms [Unknown]
  - Oedema peripheral [Unknown]
  - Pyrexia [Unknown]
  - Type I hypersensitivity [Unknown]
  - Local swelling [Unknown]
  - Hyperventilation [Unknown]
  - Peripheral swelling [Unknown]
  - Swelling [Unknown]
  - Chest discomfort [Unknown]
  - Superior vena cava syndrome [Unknown]
  - Dyspnoea [Unknown]
  - Eye oedema [Unknown]
  - Lymphocyte count increased [Unknown]
  - Asthma [Unknown]

NARRATIVE: CASE EVENT DATE: 20170504
